FAERS Safety Report 6902356-4 (Version None)
Quarter: 2010Q3

REPORT INFORMATION
  Report Type: 
  Country: None (occurrence: None)
  Receive Date: 20100803
  Receipt Date: 20080515
  Transmission Date: 20110219
  Serious: No
  Sender: FDA-Public Use
  Company Number: US-PFIZER INC-2008035008

PATIENT
  Sex: Female

DRUGS (1)
  1. LYRICA [Suspect]

REACTIONS (5)
  - BACK DISORDER [None]
  - EYE SWELLING [None]
  - JOINT SWELLING [None]
  - OEDEMA PERIPHERAL [None]
  - UNEVALUABLE EVENT [None]
